FAERS Safety Report 7368627-5 (Version None)
Quarter: 2011Q1

REPORT INFORMATION
  Report Type: 
  Country: None (occurrence: None)
  Receive Date: 20110323
  Receipt Date: 20110317
  Transmission Date: 20110831
  Serious: Yes (Other)
  Sender: FDA-Public Use
  Company Number: IT-B.I. PHARMACEUTICALS,INC./RIDGEFIELD-2011-DE-01799GD

PATIENT
  Age: 43 Year
  Sex: Male

DRUGS (3)
  1. LAMIVUDINE + ZIDOVUDINE [Suspect]
     Indication: HIV INFECTION
     Dosage: ZIDOVUDINE/LAMIVUDINE 600 MG/300 MG
     Dates: start: 20000801, end: 20030301
  2. LAMIVUDINE + ZIDOVUDINE [Suspect]
     Dosage: ZIDOVUDINE/LAMIVUDINE 600 MG/300 MG
     Dates: start: 20030501
  3. NEVIRAPINE [Suspect]
     Indication: HIV INFECTION
     Dosage: 200 MG
     Dates: start: 20000801, end: 20030301

REACTIONS (1)
  - TIC [None]
